FAERS Safety Report 16431127 (Version 2)
Quarter: 2019Q3

REPORT INFORMATION
  Report Type: Spontaneous
  Country: US (occurrence: US)
  Receive Date: 20190614
  Receipt Date: 20190710
  Transmission Date: 20191004
  Serious: No
  Sender: FDA-Public Use
  Company Number: US-PFIZER INC-2019254948

PATIENT
  Age: 65 Year
  Sex: Female

DRUGS (2)
  1. AMBRISENTAN [Concomitant]
     Active Substance: AMBRISENTAN
     Indication: PULMONARY HYPERTENSION
     Dosage: 10 MG, 1X/DAY
     Dates: start: 201611
  2. SILDENAFIL CITRATE. [Suspect]
     Active Substance: SILDENAFIL CITRATE
     Indication: PULMONARY HYPERTENSION
     Dosage: 40 MG, 3X/DAY (TWO 20MG PILLS THREE TIMES A DAY)
     Route: 048
     Dates: start: 201611

REACTIONS (2)
  - Overdose [Unknown]
  - Weight fluctuation [Unknown]

NARRATIVE: CASE EVENT DATE: 201611
